FAERS Safety Report 25964168 (Version 1)
Quarter: 2025Q4

REPORT INFORMATION
  Report Type: Spontaneous
  Country: US (occurrence: US)
  Receive Date: 20251027
  Receipt Date: 20251027
  Transmission Date: 20260118
  Serious: Yes (Hospitalization, Other)
  Sender: TEVA
  Company Number: US-TEVA-VS-3384111

PATIENT
  Age: 66 Year
  Sex: Female

DRUGS (11)
  1. MIRTAZAPINE [Suspect]
     Active Substance: MIRTAZAPINE
     Indication: Depression
     Dosage: 45 MG QHS
     Route: 048
  2. BUSPAR [Suspect]
     Active Substance: BUSPIRONE HYDROCHLORIDE
     Indication: Product used for unknown indication
     Route: 065
  3. AMITRIPTYLINE [Concomitant]
     Active Substance: AMITRIPTYLINE
     Indication: Depression
     Dosage: 50 MG QHS
     Route: 065
     Dates: start: 20241115
  4. TRAZODONE [Suspect]
     Active Substance: TRAZODONE HYDROCHLORIDE
     Indication: Anxiety
     Dosage: 300 MG AT BED TIME
     Route: 065
  5. GABAPENTIN [Concomitant]
     Active Substance: GABAPENTIN
     Indication: Anxiety
     Dosage: 1200 MG QHS
     Route: 065
  6. ASENAPINE [Concomitant]
     Active Substance: ASENAPINE
     Indication: Depression
     Dosage: TWO TABLETS DAILY
  7. OLANZAPINE [Suspect]
     Active Substance: OLANZAPINE
     Indication: Product used for unknown indication
     Dosage: AT BEDTIME, QHS
     Route: 065
     Dates: start: 20241122
  8. INGREZZA [Suspect]
     Active Substance: VALBENAZINE DITOSYLATE
     Indication: Tardive dyskinesia
     Route: 048
     Dates: start: 20241118, end: 20250120
  9. INGREZZA [Suspect]
     Active Substance: VALBENAZINE DITOSYLATE
     Indication: Tardive dyskinesia
     Route: 048
     Dates: start: 20241017, end: 2024
  10. TEMAZEPAM [Suspect]
     Active Substance: TEMAZEPAM
     Indication: Sleep disorder
     Dosage: TIME INTERVAL: AS NECESSARY: QHS
     Route: 048
  11. LORAZEPAM [Suspect]
     Active Substance: LORAZEPAM
     Indication: Anxiety
     Dosage: 2-3 TIMES A DAY AS NEEDED
     Route: 065

REACTIONS (3)
  - Suicidal ideation [Recovered/Resolved]
  - Hospitalisation [Unknown]
  - Euphoric mood [Unknown]
